FAERS Safety Report 23324397 (Version 1)
Quarter: 2023Q4

REPORT INFORMATION
  Report Type: Spontaneous
  Country: ES (occurrence: ES)
  Receive Date: 20231221
  Receipt Date: 20231221
  Transmission Date: 20240110
  Serious: Yes (Hospitalization)
  Sender: FDA-Public Use
  Company Number: None

PATIENT
  Age: 55 Year
  Sex: Female
  Weight: 80 kg

DRUGS (1)
  1. RINVOQ [Suspect]
     Active Substance: UPADACITINIB
     Indication: Spondylitis
     Dosage: 15 MG COMPRIMIDOS DE LIBERACION PROLONGADA, 28 COMPRIMIDOS
     Route: 048
     Dates: start: 20210123, end: 20231201

REACTIONS (1)
  - Portosplenomesenteric venous thrombosis [Recovering/Resolving]

NARRATIVE: CASE EVENT DATE: 20230905
